FAERS Safety Report 9519448 (Version 3)
Quarter: 2013Q4

REPORT INFORMATION
  Report Type: Spontaneous
  Country: FR (occurrence: FR)
  Receive Date: 20130912
  Receipt Date: 20131030
  Transmission Date: 20140711
  Serious: Yes (Death, Hospitalization)
  Sender: FDA-Public Use
  Company Number: FR-GLAXOSMITHKLINE-B0920180A

PATIENT
  Age: 41 Year
  Sex: Female

DRUGS (55)
  1. FORTUM [Suspect]
     Indication: PRODUCT USED FOR UNKNOWN INDICATION
     Dosage: 1G FOUR TIMES PER DAY
     Route: 042
     Dates: start: 20130621, end: 20130809
  2. FLAGYL [Suspect]
     Indication: PRODUCT USED FOR UNKNOWN INDICATION
     Dosage: 500MG THREE TIMES PER DAY
     Route: 048
     Dates: start: 20130712, end: 20130812
  3. GENTAMYCINE [Suspect]
     Indication: PRODUCT USED FOR UNKNOWN INDICATION
     Dosage: 210MG PER DAY
     Route: 042
     Dates: start: 20130809, end: 20130811
  4. NOXAFIL [Suspect]
     Dosage: 200MG THREE TIMES PER DAY
     Route: 048
     Dates: start: 20130619, end: 20130708
  5. CANCIDAS [Suspect]
     Indication: PRODUCT USED FOR UNKNOWN INDICATION
     Route: 042
     Dates: start: 20130709, end: 20130709
  6. AMBISOME [Suspect]
     Indication: PRODUCT USED FOR UNKNOWN INDICATION
     Dosage: 180MG PER DAY
     Route: 042
     Dates: start: 20130709, end: 20130811
  7. BACTRIM [Suspect]
     Indication: PRODUCT USED FOR UNKNOWN INDICATION
     Dosage: 2UNIT THREE TIMES PER WEEK
     Route: 042
     Dates: start: 20130724, end: 20130809
  8. ACID FOLINIC [Suspect]
     Indication: PRODUCT USED FOR UNKNOWN INDICATION
     Dosage: 50MG THREE TIMES PER WEEK
     Route: 042
     Dates: start: 20130724, end: 20130809
  9. ZELITREX [Suspect]
     Indication: PRODUCT USED FOR UNKNOWN INDICATION
     Dosage: 500MG TWICE PER DAY
     Route: 042
     Dates: start: 20130709, end: 20130812
  10. CYMEVAN [Suspect]
     Indication: PRODUCT USED FOR UNKNOWN INDICATION
     Dosage: 350MG TWICE PER DAY
     Route: 042
     Dates: start: 20130726, end: 20130812
  11. FOSCAVIR [Suspect]
     Indication: PRODUCT USED FOR UNKNOWN INDICATION
     Dosage: 1UNIT TWICE PER DAY
     Route: 042
     Dates: start: 20130808
  12. HUMAN IMMUNOGLOBULIN A\HUMAN IMMUNOGLOBULIN G [Suspect]
     Indication: PRODUCT USED FOR UNKNOWN INDICATION
     Route: 042
  13. GRANOCYTE [Suspect]
     Indication: PRODUCT USED FOR UNKNOWN INDICATION
     Route: 042
     Dates: start: 20130807
  14. HEPARIN [Suspect]
     Indication: PRODUCT USED FOR UNKNOWN INDICATION
     Dosage: 7000IU PER DAY
     Route: 042
     Dates: start: 20130605
  15. INEXIUM [Suspect]
     Indication: PRODUCT USED FOR UNKNOWN INDICATION
     Dosage: 40MG PER DAY
     Route: 042
     Dates: start: 20130709, end: 20130812
  16. SPASFON [Suspect]
     Indication: PRODUCT USED FOR UNKNOWN INDICATION
     Dosage: 2UNIT THREE TIMES PER DAY
     Route: 042
     Dates: start: 20130619
  17. DELURSAN [Suspect]
     Indication: PRODUCT USED FOR UNKNOWN INDICATION
     Dosage: 3UNIT TWICE PER DAY
     Route: 048
     Dates: start: 20130605, end: 20130708
  18. DEFIBROTIDE [Suspect]
     Indication: PRODUCT USED FOR UNKNOWN INDICATION
     Dosage: 25MGK PER DAY
     Route: 042
     Dates: start: 20130605, end: 20130812
  19. LARGACTIL [Suspect]
     Indication: PRODUCT USED FOR UNKNOWN INDICATION
     Dosage: 1UNIT PER DAY
     Route: 042
     Dates: start: 20130619, end: 20130709
  20. TRANXENE [Suspect]
     Indication: PRODUCT USED FOR UNKNOWN INDICATION
     Dosage: 4UNIT PER DAY
     Route: 048
     Dates: start: 20130622, end: 20130709
  21. OXYNORM [Suspect]
     Indication: PRODUCT USED FOR UNKNOWN INDICATION
     Route: 042
     Dates: start: 20130619
  22. EXACYL [Suspect]
     Indication: PRODUCT USED FOR UNKNOWN INDICATION
     Dosage: 1UNIT THREE TIMES PER DAY
     Route: 042
     Dates: start: 20130727, end: 20130812
  23. PERFALGAN [Suspect]
     Indication: PRODUCT USED FOR UNKNOWN INDICATION
     Dosage: 1G THREE TIMES PER DAY
     Route: 042
     Dates: start: 20130710, end: 20130812
  24. SOLUMEDROL [Suspect]
     Indication: PRODUCT USED FOR UNKNOWN INDICATION
     Dosage: 140MG PER DAY
     Route: 042
     Dates: start: 20130709
  25. DROLEPTAN [Suspect]
     Indication: PRODUCT USED FOR UNKNOWN INDICATION
     Dosage: .625MG FOUR TIMES PER DAY
     Route: 042
     Dates: start: 20130712, end: 20130717
  26. ULTIVA [Suspect]
     Indication: PRODUCT USED FOR UNKNOWN INDICATION
     Dates: start: 20130714, end: 20130717
  27. ATARAX [Suspect]
     Indication: PRODUCT USED FOR UNKNOWN INDICATION
     Dosage: 50MG PER DAY
     Route: 048
     Dates: start: 20130714
  28. LASILIX [Suspect]
     Indication: PRODUCT USED FOR UNKNOWN INDICATION
     Dosage: 40MG TWICE PER DAY
     Route: 042
     Dates: start: 20130716, end: 20130809
  29. SEROPLEX [Suspect]
     Indication: PRODUCT USED FOR UNKNOWN INDICATION
     Dosage: 10MG PER DAY
     Route: 048
     Dates: start: 20130721
  30. CERIS [Suspect]
     Indication: PRODUCT USED FOR UNKNOWN INDICATION
     Dosage: 20MG TWICE PER DAY
     Route: 048
     Dates: start: 20130807
  31. NOCTAMIDE [Suspect]
     Indication: PRODUCT USED FOR UNKNOWN INDICATION
     Dosage: 2MG PER DAY
     Route: 048
     Dates: start: 20130808
  32. VANCOMYCIN [Concomitant]
     Indication: PRODUCT USED FOR UNKNOWN INDICATION
     Dosage: 1G PER DAY
     Route: 065
     Dates: start: 20130605, end: 20130709
  33. CIFLOX [Concomitant]
     Indication: PRODUCT USED FOR UNKNOWN INDICATION
     Dosage: 400MG TWICE PER DAY
     Route: 065
     Dates: start: 20130621, end: 20130712
  34. TARGOCID [Concomitant]
     Indication: PRODUCT USED FOR UNKNOWN INDICATION
     Dosage: 400MG TWICE PER DAY
     Route: 065
     Dates: start: 20130710
  35. MYCOSTATINE [Concomitant]
     Indication: PRODUCT USED FOR UNKNOWN INDICATION
     Dosage: 2BT PER DAY
     Route: 065
     Dates: start: 20130605, end: 20130619
  36. TRIFLUCAN [Concomitant]
     Indication: PRODUCT USED FOR UNKNOWN INDICATION
     Dosage: 200MG PER DAY
     Route: 065
     Dates: start: 20130605, end: 20130618
  37. ZOVIRAX [Concomitant]
     Indication: PRODUCT USED FOR UNKNOWN INDICATION
     Dosage: 250MG THREE TIMES PER DAY
     Route: 065
     Dates: start: 20130605, end: 20130709
  38. METHOTREXATE [Concomitant]
     Indication: PRODUCT USED FOR UNKNOWN INDICATION
     Dosage: 18MG PER DAY
     Route: 065
     Dates: end: 20130619
  39. ELVORINE [Concomitant]
     Indication: PRODUCT USED FOR UNKNOWN INDICATION
     Dosage: 18.4MG PER DAY
     Route: 065
     Dates: start: 20130605, end: 20130619
  40. SANDIMMUN [Concomitant]
     Indication: PRODUCT USED FOR UNKNOWN INDICATION
     Dosage: 210MG PER DAY
     Route: 065
     Dates: start: 20130614, end: 20130708
  41. MOPRAL [Concomitant]
     Indication: PRODUCT USED FOR UNKNOWN INDICATION
     Dosage: 20MG PER DAY
     Route: 065
     Dates: start: 20130605, end: 20130618
  42. OGAST [Concomitant]
     Indication: PRODUCT USED FOR UNKNOWN INDICATION
     Dosage: 30MG PER DAY
     Route: 048
     Dates: start: 20130619, end: 20130708
  43. GELOX [Concomitant]
     Indication: PRODUCT USED FOR UNKNOWN INDICATION
     Dosage: 1SAC THREE TIMES PER DAY
     Route: 048
     Dates: start: 20130605, end: 20130708
  44. SMECTA [Concomitant]
     Indication: PRODUCT USED FOR UNKNOWN INDICATION
     Dosage: 6SAC PER DAY
     Route: 048
     Dates: start: 20130620, end: 20130708
  45. LUTERAN [Concomitant]
     Indication: PRODUCT USED FOR UNKNOWN INDICATION
     Dosage: 1UNIT PER DAY
     Dates: start: 20130605, end: 20130708
  46. LEXOMIL [Concomitant]
     Indication: PRODUCT USED FOR UNKNOWN INDICATION
     Dosage: .5UNIT PER DAY
     Dates: start: 20130605, end: 20130708
  47. ZOPHREN [Concomitant]
     Indication: PRODUCT USED FOR UNKNOWN INDICATION
     Dosage: 2AMP PER DAY
     Route: 048
     Dates: start: 20130605, end: 20130708
  48. PRIMPERAN [Concomitant]
     Indication: PRODUCT USED FOR UNKNOWN INDICATION
     Dosage: 6AMP PER DAY
     Dates: start: 20130620, end: 20130709
  49. ACUPAN [Concomitant]
     Indication: PRODUCT USED FOR UNKNOWN INDICATION
     Dosage: 6AMP PER DAY
     Dates: start: 20130620, end: 20130709
  50. TIORFAN [Concomitant]
     Indication: PRODUCT USED FOR UNKNOWN INDICATION
     Route: 065
     Dates: start: 20130622, end: 20130708
  51. LEVOCARNIL [Concomitant]
     Indication: PRODUCT USED FOR UNKNOWN INDICATION
     Dosage: 1G THREE TIMES PER DAY
     Route: 065
     Dates: start: 20130709, end: 20130714
  52. GENTAMICIN [Concomitant]
     Indication: ILL-DEFINED DISORDER
     Dosage: 2CAP THREE TIMES PER DAY
     Route: 048
     Dates: start: 20130705, end: 20130708
  53. COLISTINE [Concomitant]
     Indication: ILL-DEFINED DISORDER
     Dosage: 2CAP THREE TIMES PER DAY
     Route: 048
     Dates: start: 20130605, end: 20130708
  54. ENDOXAN [Concomitant]
     Indication: BONE MARROW TRANSPLANT
     Dates: start: 20130613
  55. BUSULFAN [Concomitant]
     Indication: BONE MARROW TRANSPLANT
     Dates: start: 20130613

REACTIONS (5)
  - Toxic epidermal necrolysis [Not Recovered/Not Resolved]
  - Haematuria [Not Recovered/Not Resolved]
  - Renal failure acute [Fatal]
  - Hepatitis fulminant [Fatal]
  - Multi-organ failure [Fatal]
